FAERS Safety Report 8805933 (Version 1)
Quarter: 2012Q4

REPORT INFORMATION
  Report Type: Spontaneous
  Country: US (occurrence: None)
  Receive Date: 20120919
  Receipt Date: 20120919
  Transmission Date: 20130627
  Serious: Yes (Other)
  Sender: FDA-Public Use
  Company Number: None

PATIENT
  Age: 66 Year
  Sex: Male
  Weight: 73.48 kg

DRUGS (1)
  1. AMOXICILLIN-CLAVULANATE [Suspect]
     Route: 048
     Dates: start: 20120823, end: 20120824

REACTIONS (10)
  - Chest pain [None]
  - Nausea [None]
  - Fatigue [None]
  - Asthenia [None]
  - Jaundice [None]
  - Vomiting [None]
  - Gallbladder disorder [None]
  - Renal disorder [None]
  - Hepatitis toxic [None]
  - Weight decreased [None]
